FAERS Safety Report 7707539-1 (Version None)
Quarter: 2011Q3

REPORT INFORMATION
  Report Type: 
  Country: None (occurrence: None)
  Receive Date: 20110824
  Receipt Date: 20110815
  Transmission Date: 20111222
  Serious: Yes (Other)
  Sender: FDA-Public Use
  Company Number: US-ELI_LILLY_AND_COMPANY-US201108006058

PATIENT
  Age: 71 Year
  Sex: Male

DRUGS (3)
  1. EFFIENT [Suspect]
     Indication: STENT PLACEMENT
     Dosage: UNK, UNKNOWN
     Route: 065
     Dates: start: 20100504
  2. ASPIRIN [Concomitant]
     Dosage: 81 MG, UNKNOWN
     Route: 065
  3. LIPITOR [Concomitant]
     Dosage: UNK, UNKNOWN
     Route: 065

REACTIONS (8)
  - PAIN [None]
  - MYALGIA [None]
  - CONTUSION [None]
  - RENAL IMPAIRMENT [None]
  - EPISTAXIS [None]
  - PAIN IN EXTREMITY [None]
  - HAEMORRHAGE [None]
  - MUSCULAR WEAKNESS [None]
